FAERS Safety Report 7713586-6 (Version None)
Quarter: 2011Q3

REPORT INFORMATION
  Report Type: 
  Country: None (occurrence: None)
  Receive Date: 20110826
  Receipt Date: 20110823
  Transmission Date: 20111222
  Serious: Yes (Other)
  Sender: FDA-Public Use
  Company Number: JO-PFIZER INC-2011153721

PATIENT
  Age: 31 Year
  Sex: Female

DRUGS (3)
  1. VITAMIN D [Concomitant]
     Indication: SUPPLEMENTATION THERAPY
     Dosage: 5000 IU, ALTERNATE DAY
     Route: 048
     Dates: end: 20110709
  2. PRISTIQ [Suspect]
     Indication: SKIN DISORDER
  3. PRISTIQ [Suspect]
     Indication: SKIN EXFOLIATION
     Dosage: 50 MG, 1X/DAY
     Route: 048

REACTIONS (3)
  - VAGINAL HAEMORRHAGE [None]
  - UTERINE LEIOMYOMA [None]
  - ABDOMINAL PAIN [None]
